FAERS Safety Report 20172756 (Version 2)
Quarter: 2021Q4

REPORT INFORMATION
  Report Type: Spontaneous
  Country: JP (occurrence: JP)
  Receive Date: 20211211
  Receipt Date: 20211225
  Transmission Date: 20220303
  Serious: Yes (Life-Threatening)
  Sender: FDA-Public Use
  Company Number: JP-CHUGAI-2021031271

PATIENT
  Age: 8 Decade
  Sex: Male

DRUGS (2)
  1. TECENTRIQ [Suspect]
     Active Substance: ATEZOLIZUMAB
     Indication: Hepatocellular carcinoma
     Route: 041
     Dates: start: 20210209
  2. AVASTIN [Suspect]
     Active Substance: BEVACIZUMAB
     Indication: Hepatocellular carcinoma
     Route: 041

REACTIONS (1)
  - Liver carcinoma ruptured [Recovered/Resolved]

NARRATIVE: CASE EVENT DATE: 20211204
